FAERS Safety Report 9444794 (Version 1)
Quarter: 2013Q3

REPORT INFORMATION
  Report Type: Spontaneous
  Country: US (occurrence: US)
  Receive Date: 20130807
  Receipt Date: 20130807
  Transmission Date: 20140515
  Serious: No
  Sender: FDA-Public Use
  Company Number: US-VERTEX PHARMACEUTICALS INC-2013-008585

PATIENT
  Age: 55 Year
  Sex: Female
  Weight: 51 kg

DRUGS (5)
  1. INCIVEK [Suspect]
     Indication: HEPATITIS C
     Dosage: 750 MG, TID
     Route: 048
     Dates: start: 20130524
  2. RIBASPHERE [Suspect]
     Indication: HEPATITIS C
     Dosage: 400 MG AM, 600 MG PM
     Route: 048
     Dates: start: 20130524
  3. RIBASPHERE [Suspect]
     Dosage: 200 MG AM, 400 MG PM
     Dates: start: 201307
  4. PEGASYS [Suspect]
     Indication: HEPATITIS C
     Dosage: 180 ?G, QW
     Route: 058
     Dates: start: 20130524
  5. FLUTICASONE [Concomitant]
     Indication: HYPERSENSITIVITY
     Dosage: UNK, QD
     Route: 045

REACTIONS (9)
  - Dizziness [Not Recovered/Not Resolved]
  - Dyspnoea [Not Recovered/Not Resolved]
  - Decreased appetite [Not Recovered/Not Resolved]
  - Weight decreased [Not Recovered/Not Resolved]
  - Fatigue [Not Recovered/Not Resolved]
  - Dysgeusia [Not Recovered/Not Resolved]
  - Dry skin [Not Recovered/Not Resolved]
  - Haemoglobin decreased [Not Recovered/Not Resolved]
  - Nausea [Not Recovered/Not Resolved]
